FAERS Safety Report 24849277 (Version 4)
Quarter: 2025Q1

REPORT INFORMATION
  Report Type: Spontaneous
  Country: US (occurrence: US)
  Receive Date: 20250116
  Receipt Date: 20250321
  Transmission Date: 20250408
  Serious: Yes (Hospitalization)
  Sender: RIGEL PHARMACEUTICALS
  Company Number: US-RIGEL Pharmaceuticals INC- 20250100047

PATIENT
  Age: 77 Year
  Sex: Male

DRUGS (1)
  1. TAVALISSE [Suspect]
     Active Substance: FOSTAMATINIB
     Indication: Immune thrombocytopenia
     Dosage: 150 MG, QD
     Route: 048
     Dates: start: 202407

REACTIONS (8)
  - Leukocytosis [Unknown]
  - Cellulitis [Recovered/Resolved]
  - Lactic acidosis [Unknown]
  - Platelet count decreased [Recovered/Resolved]
  - Hypertensive crisis [Not Recovered/Not Resolved]
  - Thrombocytopenia [Unknown]
  - Product prescribing issue [Unknown]
  - Product dose omission issue [Unknown]

NARRATIVE: CASE EVENT DATE: 20250101
